FAERS Safety Report 19439023 (Version 5)
Quarter: 2022Q1

REPORT INFORMATION
  Report Type: Report from Study
  Country: US (occurrence: US)
  Receive Date: 20210618
  Receipt Date: 20220207
  Transmission Date: 20220423
  Serious: Yes (Other)
  Sender: FDA-Public Use
  Company Number: NVSC2021US129750

PATIENT
  Age: 69 Year
  Sex: Female

DRUGS (1)
  1. ENTRESTO [Suspect]
     Active Substance: SACUBITRIL\VALSARTAN
     Indication: Cardiac failure
     Dosage: 200 MG, BID (97/103 MG)
     Route: 048
     Dates: start: 2019

REACTIONS (8)
  - Haemorrhage [Unknown]
  - Contusion [Unknown]
  - Wrist fracture [Unknown]
  - Arthralgia [Unknown]
  - Malaise [Unknown]
  - Clumsiness [Unknown]
  - Meniscus injury [Not Recovered/Not Resolved]
  - Fall [Unknown]

NARRATIVE: CASE EVENT DATE: 20210606
